FAERS Safety Report 9914841 (Version 1)
Quarter: 2014Q1

REPORT INFORMATION
  Report Type: Report from Study
  Country: SE (occurrence: SE)
  Receive Date: 20140220
  Receipt Date: 20140220
  Transmission Date: 20141002
  Serious: Yes (Other)
  Sender: FDA-Public Use
  Company Number: SE-BRISTOL-MYERS SQUIBB COMPANY-20171211

PATIENT
  Sex: Female

DRUGS (1)
  1. ABATACEPT [Suspect]
     Indication: MYOSITIS

REACTIONS (1)
  - Foot deformity [Unknown]
